FAERS Safety Report 12925763 (Version 1)
Quarter: 2016Q4

REPORT INFORMATION
  Report Type: Spontaneous
  Country: FR (occurrence: FR)
  Receive Date: 20161109
  Receipt Date: 20161109
  Transmission Date: 20170207
  Serious: Yes (Disabling)
  Sender: FDA-Public Use
  Company Number: FR-B.I. PHARMACEUTICALS,INC./RIDGEFIELD-2016-BI-072348

PATIENT
  Age: 60 Year
  Sex: Female

DRUGS (3)
  1. STAMICIS [Suspect]
     Active Substance: TECHNETIUM TC-99M SESTAMIBI
     Indication: SCAN MYOCARDIAL PERFUSION
     Route: 042
     Dates: start: 20161014, end: 20161014
  2. AMINOPHYLLINE RENAUDIN [Suspect]
     Active Substance: AMINOPHYLLINE
     Indication: SCAN MYOCARDIAL PERFUSION
     Dosage: DAILY DOSE: 125
     Route: 042
     Dates: start: 20161014, end: 20161014
  3. PERSANTINE [Suspect]
     Active Substance: DIPYRIDAMOLE
     Indication: SCAN MYOCARDIAL PERFUSION
     Route: 042
     Dates: start: 20161014, end: 20161014

REACTIONS (2)
  - Sudden hearing loss [Not Recovered/Not Resolved]
  - Deafness unilateral [Not Recovered/Not Resolved]

NARRATIVE: CASE EVENT DATE: 20161014
